FAERS Safety Report 7244623-3 (Version None)
Quarter: 2011Q1

REPORT INFORMATION
  Report Type: 
  Country: None (occurrence: None)
  Receive Date: 20110125
  Receipt Date: 20100824
  Transmission Date: 20110831
  Serious: Yes (Other)
  Sender: FDA-Public Use
  Company Number: US-MERCK-1008USA03241

PATIENT
  Age: 43 Year
  Sex: Female
  Weight: 125 kg

DRUGS (27)
  1. LYRICA [Suspect]
     Route: 048
  2. INSULIN DETEMIR [Suspect]
     Route: 058
  3. TEGRETOL [Suspect]
     Indication: MOOD SWINGS
     Route: 048
  4. TEGRETOL [Suspect]
     Indication: PERSONALITY DISORDER
     Route: 048
  5. BACLOFEN [Suspect]
     Indication: RESTLESS LEGS SYNDROME
     Route: 048
  6. MIRALAX [Suspect]
     Indication: CONSTIPATION
     Route: 048
  7. VITAMIN E [Suspect]
     Route: 065
  8. PRINIVIL [Suspect]
     Indication: BLOOD PRESSURE INCREASED
     Route: 048
     Dates: start: 20060101
  9. ZOCOR [Suspect]
     Indication: BLOOD CHOLESTEROL INCREASED
     Route: 048
     Dates: start: 20070101
  10. PROVIGIL [Suspect]
     Route: 048
  11. PROPRANOLOL HYDROCHLORIDE [Suspect]
     Indication: BLOOD PRESSURE INCREASED
     Route: 048
     Dates: start: 20060101
  12. FLUTICASONE PROPIONATE [Suspect]
     Indication: NASAL SEPTUM DEVIATION
     Route: 065
     Dates: start: 20100101
  13. CETIRIZINE HYDROCHLORIDE [Suspect]
     Indication: HYPERSENSITIVITY
     Route: 048
  14. ASPIRIN [Suspect]
     Indication: CARDIAC DISORDER
     Route: 048
  15. TEGRETOL [Suspect]
     Route: 048
  16. METHADOSE [Suspect]
     Indication: PAIN
     Route: 048
  17. CYMBALTA [Suspect]
     Indication: DEPRESSION
     Route: 048
     Dates: start: 19970101
  18. OMEPRAZOLE [Suspect]
     Indication: GASTROOESOPHAGEAL REFLUX DISEASE
     Route: 048
  19. LIDODERM [Suspect]
     Indication: MYALGIA
     Route: 065
     Dates: start: 20090101
  20. LEVOTHYROXINE SODIUM [Suspect]
     Indication: THYROID DISORDER
     Route: 048
     Dates: start: 20060101
  21. TEGRETOL [Suspect]
     Route: 048
  22. METHOCARBAMOL [Suspect]
     Indication: PAIN
     Route: 048
  23. OMEGA-3 MARINE TRIGLYCERIDES [Suspect]
     Route: 065
  24. PROVIGIL [Suspect]
     Indication: SLEEP APNOEA SYNDROME
     Route: 048
  25. LYRICA [Suspect]
     Indication: FIBROMYALGIA
     Route: 048
     Dates: start: 20070101
  26. MELOXICAM [Suspect]
     Indication: PAIN
     Route: 048
  27. INSULIN DETEMIR [Suspect]
     Indication: DIABETES MELLITUS
     Route: 058

REACTIONS (2)
  - CONVULSION [None]
  - FIBROMYALGIA [None]
